FAERS Safety Report 4690193-3 (Version None)
Quarter: 2005Q2

REPORT INFORMATION
  Report Type: 
  Country: None (occurrence: None)
  Receive Date: 20050613
  Receipt Date: 20050601
  Transmission Date: 20051028
  Serious: Yes (Hospitalization)
  Sender: FDA-Public Use
  Company Number: 2005-05-0770

PATIENT
  Age: 71 Year
  Sex: Female

DRUGS (1)
  1. ALBUTEROL [Suspect]
     Indication: ASTHMA
     Dosage: 4-12/DAY ORAL AER INH
     Route: 055
     Dates: start: 19900101

REACTIONS (2)
  - ASTHMA [None]
  - CONDITION AGGRAVATED [None]
